FAERS Safety Report 21370881 (Version 5)
Quarter: 2023Q2

REPORT INFORMATION
  Report Type: Report from Study
  Country: ES (occurrence: ES)
  Receive Date: 20220923
  Receipt Date: 20230511
  Transmission Date: 20230721
  Serious: Yes (Death, Life-Threatening, Hospitalization, Other)
  Sender: FDA-Public Use
  Company Number: ES-PHARMAMAR-2022PM000422

PATIENT
  Age: 63 Year
  Sex: Male
  Weight: 57.1 kg

DRUGS (14)
  1. LURBINECTEDIN [Suspect]
     Active Substance: LURBINECTEDIN
     Indication: Gastroenteropancreatic neuroendocrine tumour disease
     Dosage: 2 MILLIGRAM/SQ. METER
     Route: 042
     Dates: start: 20220905, end: 20220905
  2. IRINOTECAN [Suspect]
     Active Substance: IRINOTECAN
     Indication: Gastroenteropancreatic neuroendocrine tumour disease
     Dosage: 75 MILLIGRAM/SQ. METER
     Route: 042
     Dates: start: 20220905, end: 20220905
  3. FOLIC ACID [Concomitant]
     Active Substance: FOLIC ACID
     Indication: Prophylaxis
     Dosage: UNK
  4. FUROSEMIDE [Concomitant]
     Active Substance: FUROSEMIDE
     Indication: Prophylaxis
     Dosage: UNK
  5. OXYBUTYNIN [Concomitant]
     Active Substance: OXYBUTYNIN
     Indication: Prophylaxis
     Dosage: UNK
  6. DUPROST [DUTASTERIDE] [Concomitant]
     Indication: Prophylaxis
     Dosage: UNK
  7. SULFAMETHOXAZOLE\TRIMETHOPRIM [Concomitant]
     Active Substance: SULFAMETHOXAZOLE\TRIMETHOPRIM
     Indication: Prophylaxis
     Dosage: UNK
  8. OMEPRAZOLE [Concomitant]
     Active Substance: OMEPRAZOLE
     Indication: Prophylaxis
     Dosage: UNK
  9. FENTANYL [Concomitant]
     Active Substance: FENTANYL
     Indication: Cancer pain
     Dosage: UNK
  10. NALOXONE HYDROCHLORIDE\OXYCODONE HYDROCHLORIDE [Concomitant]
     Active Substance: NALOXONE HYDROCHLORIDE\OXYCODONE HYDROCHLORIDE
     Indication: Cancer pain
     Dosage: UNK
  11. DEXAMETHASONE [Concomitant]
     Active Substance: DEXAMETHASONE
     Indication: Cancer pain
     Dosage: UNK
     Dates: start: 20220101, end: 20220911
  12. ONDANSETRON HYDROCHLORIDE [Concomitant]
     Active Substance: ONDANSETRON HYDROCHLORIDE
     Indication: Cancer pain
     Dosage: UNK
     Dates: start: 20220905, end: 20220905
  13. ATROPINE [Concomitant]
     Active Substance: ATROPINE
     Indication: Cancer pain
     Dosage: UNK
     Dates: start: 20220905, end: 20220905
  14. GRANULOCYTE COLONY-STIMULATING FACTOR NOS [Concomitant]
     Active Substance: GRANULOCYTE COLONY-STIMULATING FACTOR NOS
     Indication: Cancer pain
     Dosage: UNK
     Dates: start: 20220906, end: 20220910

REACTIONS (3)
  - Bacteraemia [Fatal]
  - Gastrointestinal toxicity [Fatal]
  - Neutrophil count decreased [Recovered/Resolved]

NARRATIVE: CASE EVENT DATE: 20220907
